FAERS Safety Report 4713074-5 (Version None)
Quarter: 2005Q3

REPORT INFORMATION
  Report Type: 
  Country: None (occurrence: None)
  Receive Date: 20050713
  Receipt Date: 20050704
  Transmission Date: 20060218
  Serious: Yes (Other)
  Sender: FDA-Public Use
  Company Number: PHBS2005BE09550

PATIENT
  Age: 73 Year
  Sex: Female

DRUGS (5)
  1. ZOMETA [Suspect]
     Indication: METASTASES TO BONE
     Dosage: 4 MG EVERY 4 WEEKS
     Route: 042
     Dates: start: 20050520, end: 20050613
  2. XELODA [Concomitant]
     Indication: BREAST CANCER STAGE IV
     Dosage: 1800 MG/DAY
     Dates: start: 20040413, end: 20040501
  3. TAXOTERE [Concomitant]
     Indication: BREAST CANCER STAGE IV
     Dosage: 61 MG, QW
     Dates: start: 20040810, end: 20050104
  4. NAVELBINE [Concomitant]
     Indication: BREAST CANCER STAGE IV
     Dosage: 25 MG FROM D1 TO D8 EVERY 4 WKS
     Dates: start: 20040608, end: 20040803
  5. MITOMYCIN [Concomitant]
     Indication: BREAST CANCER STAGE IV
     Dosage: 14 MG EVERY 4 WEEKS
     Dates: start: 20040608, end: 20040803

REACTIONS (6)
  - ASEPTIC NECROSIS BONE [None]
  - DENTAL OPERATION [None]
  - NECROSIS [None]
  - PAIN IN JAW [None]
  - TOOTH DISORDER [None]
  - TOOTH EXTRACTION [None]
